FAERS Safety Report 4988585-8 (Version None)
Quarter: 2006Q2

REPORT INFORMATION
  Report Type: 
  Country: None (occurrence: None)
  Receive Date: 20060502
  Receipt Date: 19951030
  Transmission Date: 20061013
  Serious: Yes (Hospitalization)
  Sender: FDA-Public Use
  Company Number: 95NL-10005

PATIENT
  Age: 75 Year
  Sex: Male

DRUGS (3)
  1. BACLOFEN [Suspect]
     Indication: MYELOPATHY
     Dosage: 10 MG, BID
     Route: 048
  2. THEOPHYLLINE [Concomitant]
     Dosage: 250 MG, TID
     Route: 065
  3. TEMAZEPAM [Concomitant]
     Dosage: 10 MG, QD
     Route: 065

REACTIONS (15)
  - DIARRHOEA [None]
  - EATING DISORDER [None]
  - GASTRIC ATONY [None]
  - GASTRIC DILATATION [None]
  - GASTROINTESTINAL DISORDER [None]
  - GASTROINTESTINAL HYPOMOTILITY [None]
  - GASTROINTESTINAL MOTILITY DISORDER [None]
  - HAEMANGIOMA OF LIVER [None]
  - HAEMOGLOBIN DECREASED [None]
  - HYPONATRAEMIA [None]
  - INTESTINAL OBSTRUCTION [None]
  - NAUSEA [None]
  - VOMITING [None]
  - WEIGHT DECREASED [None]
  - WHITE BLOOD CELL COUNT INCREASED [None]
